FAERS Safety Report 25285452 (Version 7)
Quarter: 2025Q4

REPORT INFORMATION
  Report Type: Report from Study
  Country: CA (occurrence: CA)
  Receive Date: 20250509
  Receipt Date: 20251218
  Transmission Date: 20260117
  Serious: Yes (Other)
  Sender: TAKEDA
  Company Number: CA-TAKEDA-CA202027248

PATIENT
  Age: 67 Year
  Sex: Female

DRUGS (54)
  1. AGALSIDASE ALFA [Suspect]
     Active Substance: AGALSIDASE ALFA
     Indication: Fabry^s disease
     Dosage: 9.98 MILLIGRAM, 1/WEEK
     Dates: start: 20080101
  2. AGALSIDASE ALFA [Suspect]
     Active Substance: AGALSIDASE ALFA
     Dosage: 9.98 MILLIGRAM, 1/WEEK
  3. AGALSIDASE ALFA [Suspect]
     Active Substance: AGALSIDASE ALFA
     Dosage: 9.98 MILLIGRAM, 1/WEEK
  4. AGALSIDASE ALFA [Suspect]
     Active Substance: AGALSIDASE ALFA
     Dosage: 3 DOSAGE FORM, 1/WEEK
  5. AGALSIDASE ALFA [Suspect]
     Active Substance: AGALSIDASE ALFA
     Dosage: 3 DOSAGE FORM, 1/WEEK
  6. AGALSIDASE ALFA [Suspect]
     Active Substance: AGALSIDASE ALFA
     Dosage: 3 DOSAGE FORM, 1/WEEK
  7. AGALSIDASE ALFA [Suspect]
     Active Substance: AGALSIDASE ALFA
     Dosage: 9.82 MILLIGRAM, 1/WEEK
  8. AGALSIDASE ALFA [Suspect]
     Active Substance: AGALSIDASE ALFA
     Dosage: 9.82 MILLIGRAM, 1/WEEK
  9. AGALSIDASE ALFA [Suspect]
     Active Substance: AGALSIDASE ALFA
     Dosage: 7 GRAM, 1/WEEK
  10. AGALSIDASE ALFA [Suspect]
     Active Substance: AGALSIDASE ALFA
     Dosage: 3 DOSAGE FORM, Q2WEEKS
  11. AGALSIDASE ALFA [Suspect]
     Active Substance: AGALSIDASE ALFA
     Dosage: 3 DOSAGE FORM, Q2WEEKS
  12. AGALSIDASE ALFA [Suspect]
     Active Substance: AGALSIDASE ALFA
     Dosage: 3 DOSAGE FORM, Q2WEEKS
  13. AGALSIDASE ALFA [Suspect]
     Active Substance: AGALSIDASE ALFA
     Dosage: 3 DOSAGE FORM, Q2WEEKS
  14. AGALSIDASE ALFA [Suspect]
     Active Substance: AGALSIDASE ALFA
     Dosage: 3 DOSAGE FORM, Q2WEEKS
  15. AGALSIDASE ALFA [Suspect]
     Active Substance: AGALSIDASE ALFA
     Dosage: 3 DOSAGE FORM, Q2WEEKS
  16. AGALSIDASE ALFA [Suspect]
     Active Substance: AGALSIDASE ALFA
     Dosage: 9.72 MILLIGRAM, Q2WEEKS
  17. AGALSIDASE ALFA [Suspect]
     Active Substance: AGALSIDASE ALFA
     Dosage: 3 DOSAGE FORM, Q2WEEKS
  18. AGALSIDASE ALFA [Suspect]
     Active Substance: AGALSIDASE ALFA
     Dosage: 9.72 MILLIGRAM, Q2WEEKS
  19. AGALSIDASE ALFA [Suspect]
     Active Substance: AGALSIDASE ALFA
     Dosage: 9.82 MILLIGRAM, Q2WEEKS
  20. AGALSIDASE ALFA [Suspect]
     Active Substance: AGALSIDASE ALFA
     Dosage: 3 DOSAGE FORM, Q2WEEKS
  21. AGALSIDASE ALFA [Suspect]
     Active Substance: AGALSIDASE ALFA
     Dosage: UNK UNK, Q2WEEKS
  22. AGALSIDASE ALFA [Suspect]
     Active Substance: AGALSIDASE ALFA
     Dosage: UNK UNK, Q2WEEKS
  23. AGALSIDASE ALFA [Suspect]
     Active Substance: AGALSIDASE ALFA
     Dosage: 9.82 MILLIGRAM, Q2WEEKS
  24. AGALSIDASE ALFA [Suspect]
     Active Substance: AGALSIDASE ALFA
     Dosage: 9.82 MILLIGRAM, Q2WEEKS
  25. AGALSIDASE ALFA [Suspect]
     Active Substance: AGALSIDASE ALFA
     Dosage: UNK UNK, Q2WEEKS
  26. AGALSIDASE ALFA [Suspect]
     Active Substance: AGALSIDASE ALFA
     Dosage: UNK UNK, Q2WEEKS
  27. AGALSIDASE ALFA [Suspect]
     Active Substance: AGALSIDASE ALFA
     Dosage: 9.76 MILLIGRAM, Q2WEEKS
  28. AGALSIDASE ALFA [Suspect]
     Active Substance: AGALSIDASE ALFA
     Dosage: 9.76 MILLIGRAM/KILOGRAM, Q2WEEKS
  29. AGALSIDASE ALFA [Suspect]
     Active Substance: AGALSIDASE ALFA
     Dosage: 10.5 MILLIGRAM
  30. AGALSIDASE ALFA [Suspect]
     Active Substance: AGALSIDASE ALFA
     Dosage: 9.76 MILLIGRAM, Q2WEEKS
  31. AGALSIDASE ALFA [Suspect]
     Active Substance: AGALSIDASE ALFA
     Dosage: 9.76 MILLIGRAM, Q2WEEKS
  32. AGALSIDASE ALFA [Suspect]
     Active Substance: AGALSIDASE ALFA
     Dosage: 9.76 MILLIGRAM, Q2WEEKS
  33. AGALSIDASE ALFA [Suspect]
     Active Substance: AGALSIDASE ALFA
     Dosage: 9.76 MILLIGRAM, Q2WEEKS
  34. ASACOL [Suspect]
     Active Substance: MESALAMINE
     Indication: Product used for unknown indication
     Dosage: 1200 MILLIGRAM, BID
     Dates: start: 20220522
  35. ASACOL [Suspect]
     Active Substance: MESALAMINE
     Dosage: 250 MILLIGRAM, BID
  36. ASACOL [Suspect]
     Active Substance: MESALAMINE
     Dosage: 400 MILLIGRAM, TID
  37. ASACOL [Suspect]
     Active Substance: MESALAMINE
     Dosage: UNK UNK, BID
  38. ASPIRIN [Suspect]
     Active Substance: ASPIRIN
     Indication: Product used for unknown indication
     Dosage: 81 MILLIGRAM, QD
  39. COVID-19 VACCINE NOS [Suspect]
     Active Substance: COVID-19 VACCINE
     Indication: Product used for unknown indication
     Dosage: UNK
  40. PRAVASTATIN [Suspect]
     Active Substance: PRAVASTATIN
     Indication: Product used for unknown indication
     Dosage: 20 MILLIGRAM, QD
     Dates: end: 20220628
  41. PRAVASTATIN [Suspect]
     Active Substance: PRAVASTATIN
     Dosage: 10 MILLIGRAM, QD
     Dates: start: 20221201
  42. POLYETHYLENE GLYCOL 3350\POTASSIUM CHLORIDE\SODIUM BICARBONATE\SODIUM [Suspect]
     Active Substance: POLYETHYLENE GLYCOL 3350\POTASSIUM CHLORIDE\SODIUM BICARBONATE\SODIUM CHLORIDE\SODIUM SULFATE
     Indication: Product used for unknown indication
     Dosage: UNK
  43. VITAMIN D [Concomitant]
     Active Substance: VITAMIN D NOS
     Dosage: 2000 INTERNATIONAL UNIT, QD
  44. VITAMIN D [Concomitant]
     Active Substance: VITAMIN D NOS
     Dosage: 2000 INTERNATIONAL UNIT, QD
  45. CALCIUM [Concomitant]
     Active Substance: CALCIUM
     Dosage: 500 MILLIGRAM, BID
  46. CALCIUM [Concomitant]
     Active Substance: CALCIUM
     Dosage: 500 MILLIGRAM, BID
  47. TACROLIMUS [Concomitant]
     Active Substance: TACROLIMUS
     Dosage: 3 MILLIGRAM, BID
  48. TACROLIMUS [Concomitant]
     Active Substance: TACROLIMUS
     Dosage: 2.5 MILLIGRAM, QD
  49. TACROLIMUS [Concomitant]
     Active Substance: TACROLIMUS
     Dosage: 3 MILLIGRAM, QD
  50. MAGNESIUM OXIDE [Concomitant]
     Active Substance: MAGNESIUM OXIDE
     Dosage: 420 MILLIGRAM, TID
  51. PREDNISONE [Concomitant]
     Active Substance: PREDNISONE
     Dosage: 2.5 MILLIGRAM, QD
  52. ALENDRONATE [Concomitant]
     Active Substance: ALENDRONATE SODIUM
     Dosage: 70 MILLIGRAM, 1/WEEK
  53. POTASSIUM CHLORIDE [Concomitant]
     Active Substance: POTASSIUM CHLORIDE
     Dosage: 16 MILLIGRAM, BID
  54. PRAVASTATIN SODIUM [Concomitant]
     Active Substance: PRAVASTATIN SODIUM
     Dosage: 20 MILLIGRAM

REACTIONS (52)
  - Crohn^s disease [Unknown]
  - Colitis ulcerative [Recovering/Resolving]
  - Cataract [Recovering/Resolving]
  - Arthralgia [Recovered/Resolved]
  - Precancerous skin lesion [Recovering/Resolving]
  - Colitis [Not Recovered/Not Resolved]
  - Diarrhoea haemorrhagic [Recovered/Resolved]
  - Haematochezia [Recovered/Resolved]
  - Drug level increased [Not Recovered/Not Resolved]
  - Poor venous access [Recovered/Resolved]
  - Blood pressure increased [Recovered/Resolved]
  - Pigmentation disorder [Unknown]
  - Anxiety [Not Recovered/Not Resolved]
  - Burning sensation [Unknown]
  - Contusion [Recovering/Resolving]
  - Tenderness [Recovering/Resolving]
  - Venous occlusion [Unknown]
  - Infusion site bruising [Not Recovered/Not Resolved]
  - Infusion site pain [Not Recovered/Not Resolved]
  - Heart rate irregular [Recovered/Resolved]
  - Gastrointestinal disorder [Not Recovered/Not Resolved]
  - Food aversion [Not Recovered/Not Resolved]
  - Blood potassium increased [Recovering/Resolving]
  - Blood cholesterol increased [Unknown]
  - Ear congestion [Recovered/Resolved with Sequelae]
  - Weight increased [Unknown]
  - Troponin increased [Unknown]
  - Product dose omission issue [Unknown]
  - Urinary hesitation [Not Recovered/Not Resolved]
  - Micturition urgency [Not Recovered/Not Resolved]
  - Nocturia [Not Recovered/Not Resolved]
  - Bruxism [Unknown]
  - Infusion related reaction [Recovered/Resolved]
  - Discomfort [Recovering/Resolving]
  - Productive cough [Recovered/Resolved with Sequelae]
  - Incisional hernia [Not Recovered/Not Resolved]
  - Concussion [Unknown]
  - Wrist fracture [Unknown]
  - Food intolerance [Not Recovered/Not Resolved]
  - COVID-19 [Recovering/Resolving]
  - Hordeolum [Recovered/Resolved]
  - Head discomfort [Recovered/Resolved]
  - Incorrect dose administered [Not Recovered/Not Resolved]
  - Nasopharyngitis [Not Recovered/Not Resolved]
  - Pain in extremity [Not Recovered/Not Resolved]
  - Abdominal discomfort [Not Recovered/Not Resolved]
  - Rash [Recovered/Resolved with Sequelae]
  - Headache [Recovered/Resolved]
  - Fatigue [Recovered/Resolved]
  - Rhinorrhoea [Recovered/Resolved]
  - Hypersensitivity [Recovered/Resolved]
  - Muscle spasms [Recovered/Resolved]

NARRATIVE: CASE EVENT DATE: 20200924
